FAERS Safety Report 5069444-1 (Version None)
Quarter: 2006Q3

REPORT INFORMATION
  Report Type: 
  Country: None (occurrence: None)
  Receive Date: 20060714
  Receipt Date: 20060418
  Transmission Date: 20061208
  Serious: No
  Sender: FDA-Public Use
  Company Number: 2006SP001750

PATIENT
  Age: 45 Year
  Sex: Female
  Weight: 52.1637 kg

DRUGS (2)
  1. LUNESTA [Suspect]
     Indication: INSOMNIA
     Dosage: 1X; ORAL
     Route: 048
     Dates: start: 20060416, end: 20060416
  2. LEXAPRO [Concomitant]

REACTIONS (4)
  - EYE SWELLING [None]
  - HEADACHE [None]
  - RHINORRHOEA [None]
  - VOMITING [None]
